FAERS Safety Report 7277304-0 (Version None)
Quarter: 2011Q1

REPORT INFORMATION
  Report Type: 
  Country: None (occurrence: None)
  Receive Date: 20110203
  Receipt Date: 20110203
  Transmission Date: 20110831
  Serious: Yes (Death)
  Sender: FDA-Public Use
  Company Number: None

PATIENT
  Age: 21 Year
  Sex: Female
  Weight: 67.3 kg

DRUGS (3)
  1. PROZAC [Suspect]
     Indication: DEPRESSION
     Dosage: 20 MG 1 DAY ORALLY
     Route: 048
     Dates: start: 20101216, end: 20101220
  2. PROZAC [Suspect]
     Indication: EATING DISORDER
     Dosage: 20 MG 1 DAY ORALLY
     Route: 048
     Dates: start: 20101216, end: 20101220
  3. DIPHENHYDRAMINE [Concomitant]

REACTIONS (1)
  - MALAISE [None]
